FAERS Safety Report 5942161-9 (Version None)
Quarter: 2008Q4

REPORT INFORMATION
  Report Type: 
  Country: None (occurrence: None)
  Receive Date: 20081104
  Receipt Date: 20081104
  Transmission Date: 20090506
  Serious: Yes (Other)
  Sender: FDA-Public Use
  Company Number: None

PATIENT
  Age: 62 Year
  Sex: Male

DRUGS (1)
  1. VARENICLINE [Suspect]
     Indication: EX-TOBACCO USER
     Dosage: 150 MG BID PO
     Route: 048
     Dates: start: 20071009, end: 20071009

REACTIONS (3)
  - ABDOMINAL PAIN [None]
  - INSOMNIA [None]
  - MUSCLE SPASMS [None]
